FAERS Safety Report 6077185-7 (Version None)
Quarter: 2009Q1

REPORT INFORMATION
  Report Type: 
  Country: None (occurrence: None)
  Receive Date: 20090211
  Receipt Date: 20090202
  Transmission Date: 20090719
  Serious: Yes (Death)
  Sender: FDA-Public Use
  Company Number: 1000002973

PATIENT
  Age: 27 Year
  Sex: Male

DRUGS (7)
  1. CITALOPRAM HYDROBROMIDE [Suspect]
     Indication: DEPRESSION
     Dosage: 40 MG (40 MG,1 IN 1 D),ORAL 20 MG (20 MG,1 IN 1 D),ORAL
     Route: 048
     Dates: start: 20070601
  2. ZYPREXA [Suspect]
     Indication: SCHIZOPHRENIA
     Dosage: 40 MG (40 MG,1 IN 1 D),ORAL ; 20 MG (20 MG,1 IN 1 D),ORAL ; 30 MG (30 MG,1 IN 1 D),ORAL
     Route: 048
     Dates: start: 20030301, end: 20040401
  3. ZYPREXA [Suspect]
     Indication: SCHIZOPHRENIA
     Dosage: 40 MG (40 MG,1 IN 1 D),ORAL ; 20 MG (20 MG,1 IN 1 D),ORAL ; 30 MG (30 MG,1 IN 1 D),ORAL
     Route: 048
     Dates: start: 20040401, end: 20050101
  4. ZYPREXA [Suspect]
     Indication: SCHIZOPHRENIA
     Dosage: 40 MG (40 MG,1 IN 1 D),ORAL ; 20 MG (20 MG,1 IN 1 D),ORAL ; 30 MG (30 MG,1 IN 1 D),ORAL
     Route: 048
     Dates: start: 20050101
  5. LORASIFAR(TABLETS) [Concomitant]
  6. ZOLPIDEM TARTRATE [Concomitant]
  7. NICOTINE (POULTICE OR PATCH) [Concomitant]

REACTIONS (6)
  - DYSPEPSIA [None]
  - ELECTROLYTE IMBALANCE [None]
  - HEAT STROKE [None]
  - MALAISE [None]
  - OVERDOSE [None]
  - PANCREATITIS HAEMORRHAGIC [None]
